FAERS Safety Report 8247359-5 (Version None)
Quarter: 2012Q1

REPORT INFORMATION
  Report Type: 
  Country: None (occurrence: None)
  Receive Date: 20120328
  Receipt Date: 20120328
  Transmission Date: 20120608
  Serious: No
  Sender: FDA-Public Use
  Company Number: None

PATIENT
  Age: 38 Year
  Sex: Female

DRUGS (1)
  1. LOESTRIN FE 1/20 [Suspect]
     Dates: start: 20100627, end: 20100706

REACTIONS (17)
  - DECREASED APPETITE [None]
  - PRURITUS [None]
  - CHOLESTASIS [None]
  - CHROMATURIA [None]
  - PYREXIA [None]
  - ABDOMINAL PAIN [None]
  - LIVER DISORDER [None]
  - NAUSEA [None]
  - FAECES PALE [None]
  - MENTAL STATUS CHANGES [None]
  - CHOLELITHIASIS [None]
  - PANCYTOPENIA [None]
  - RASH [None]
  - INTRA-ABDOMINAL HAEMORRHAGE [None]
  - ANTINUCLEAR ANTIBODY POSITIVE [None]
  - JAUNDICE [None]
  - LIVER FUNCTION TEST ABNORMAL [None]
